FAERS Safety Report 7924263-0 (Version None)
Quarter: 2011Q4

REPORT INFORMATION
  Report Type: 
  Country: None (occurrence: None)
  Receive Date: 20111117
  Receipt Date: 20110321
  Transmission Date: 20120403
  Serious: No
  Sender: FDA-Public Use
  Company Number: US-AMGEN-USASP2011015205

PATIENT
  Sex: Female

DRUGS (16)
  1. MORPHINE SULFATE [Concomitant]
     Dosage: UNK
  2. BENADRYL [Concomitant]
     Dosage: UNK
  3. FOLIC ACID [Concomitant]
  4. ENBREL [Suspect]
     Dosage: 50 MG, QWK
     Route: 058
  5. PREMPRO [Concomitant]
     Dosage: UNK
  6. CITALOPRAM HYDROBROMIDE [Concomitant]
  7. BUTALBITAL [Concomitant]
  8. HYDROXYCHLOROQUINE SULFATE [Concomitant]
     Dosage: UNK
  9. ATROVENT HFA [Concomitant]
     Dosage: UNK
  10. PIROXICAM [Concomitant]
     Dosage: UNK
  11. HYDROCODONE BITARTRATE [Concomitant]
     Dosage: UNK
  12. FLOVENT [Concomitant]
     Dosage: UNK
  13. PROAIR HFA [Concomitant]
  14. METHOTREXATE [Concomitant]
     Dosage: UNK
  15. TRAZODONE HCL [Concomitant]
     Dosage: UNK
  16. OMEPRAZOLE [Concomitant]
     Dosage: UNK

REACTIONS (1)
  - UPPER RESPIRATORY TRACT INFECTION [None]
